FAERS Safety Report 20954760 (Version 2)
Quarter: 2022Q3

REPORT INFORMATION
  Report Type: Spontaneous
  Country: US (occurrence: US)
  Receive Date: 20220614
  Receipt Date: 20220706
  Transmission Date: 20221026
  Serious: No
  Sender: FDA-Public Use
  Company Number: US-TEVA-2022-US-2043983

PATIENT
  Age: 65 Year
  Sex: Female
  Weight: 88.45 kg

DRUGS (1)
  1. CEPHALEXIN [Suspect]
     Active Substance: CEPHALEXIN
     Indication: Urinary tract infection
     Route: 065

REACTIONS (2)
  - Drug ineffective [Unknown]
  - Pruritus [Unknown]
